FAERS Safety Report 4471108-X (Version None)
Quarter: 2004Q4

REPORT INFORMATION
  Report Type: 
  Country: None (occurrence: None)
  Receive Date: 20041011
  Receipt Date: 20041001
  Transmission Date: 20050328
  Serious: Yes (Other)
  Sender: FDA-Public Use
  Company Number: PHNU2004SI03404

PATIENT
  Age: 65 Year
  Sex: Male
  Weight: 110 kg

DRUGS (5)
  1. CO-DIOVAN [Suspect]
     Indication: HYPERTENSION
     Dosage: 1 DF, QD
     Route: 048
     Dates: start: 20040629, end: 20040713
  2. TONOCARDIN [Concomitant]
     Indication: HYPERTENSION
     Dosage: 2 MG, BID
     Dates: start: 20030101
  3. RYTMONORM [Concomitant]
     Indication: ATRIAL FIBRILLATION
     Dosage: 150 MG, BID
     Dates: start: 20021210
  4. SERETIDE ^ALLEN + HANBURYS LTD^ [Concomitant]
     Indication: ASTHMA
     Dosage: 50/250 MG/BID
  5. BERODUAL [Concomitant]
     Dosage: UNK, PRN

REACTIONS (1)
  - ASTHMA [None]
